FAERS Safety Report 6803384-X (Version None)
Quarter: 2010Q2

REPORT INFORMATION
  Report Type: 
  Country: None (occurrence: None)
  Receive Date: 20100628
  Receipt Date: 20100617
  Transmission Date: 20101027
  Serious: Yes (Hospitalization, Other)
  Sender: FDA-Public Use
  Company Number: US-PFIZER INC-2010079508

PATIENT
  Sex: Male
  Weight: 120.18 kg

DRUGS (5)
  1. LIPITOR [Suspect]
     Dosage: 40 MG, 1X/DAY
  2. TAMSULOSIN HYDROCHLORIDE [Concomitant]
     Indication: BENIGN PROSTATIC HYPERPLASIA
     Dosage: 0.4 MG, 1X/DAY
  3. PRILOSEC [Concomitant]
     Indication: GASTROOESOPHAGEAL REFLUX DISEASE
     Dosage: 20 MG, 2X/DAY
  4. FELODIPINE [Concomitant]
     Indication: BLOOD PRESSURE INCREASED
     Dosage: UNK
  5. ACETYLSALICYLIC ACID [Concomitant]
     Indication: PROPHYLAXIS
     Dosage: 81 MG, 1X/DAY

REACTIONS (1)
  - LUNG NEOPLASM MALIGNANT [None]
